FAERS Safety Report 7786317-1 (Version None)
Quarter: 2011Q3

REPORT INFORMATION
  Report Type: 
  Country: None (occurrence: None)
  Receive Date: 20110929
  Receipt Date: 20110921
  Transmission Date: 20111222
  Serious: Yes (Hospitalization, Other)
  Sender: FDA-Public Use
  Company Number: PHEH2005US09403

PATIENT
  Sex: Female

DRUGS (76)
  1. PAXIL [Concomitant]
  2. XELODA [Concomitant]
     Dosage: UNK, X 2
     Dates: start: 20040101, end: 20040201
  3. AVASTIN [Concomitant]
  4. KEFLEX [Concomitant]
  5. ZOFRAN [Concomitant]
  6. ZOSYN [Concomitant]
  7. ZOMETA [Suspect]
     Indication: METASTASES TO BONE
     Dosage: 4 MG, QW4
     Dates: start: 20030109, end: 20050801
  8. INFLUENZA VACCINE [Concomitant]
  9. METHYLPREDNISOLONE [Concomitant]
  10. TAGAMET [Concomitant]
  11. BENADRYL ^ACHE^ [Concomitant]
  12. COLACE [Concomitant]
  13. IMODIUM [Concomitant]
  14. ZITHROMAX [Concomitant]
  15. NARCAN [Concomitant]
  16. MOBIC [Concomitant]
  17. UNASYN [Concomitant]
  18. LIDOCAINE [Concomitant]
  19. FLUOROURACIL [Concomitant]
  20. FORTAZ [Concomitant]
  21. AROMASIN [Concomitant]
  22. FENTANYL [Concomitant]
  23. TYLENOL-500 [Concomitant]
  24. MORPHINE [Concomitant]
  25. BACTRIM DS [Concomitant]
  26. EFFEXOR [Concomitant]
  27. TEMAZEPAM [Concomitant]
  28. AREDIA [Suspect]
     Dates: start: 19960101, end: 20030201
  29. PREDNISONE [Concomitant]
  30. CYCLOPHOSPHAMIDE [Concomitant]
  31. COLYTE ^REED^ [Concomitant]
  32. HEPATITIS B VACCINE [Concomitant]
  33. CATAPRES                                /UNK/ [Concomitant]
  34. ROCEPHIN [Concomitant]
  35. ZOLPIDEM [Concomitant]
  36. XELODA [Concomitant]
     Dates: start: 20030701, end: 20031201
  37. BISACODYL [Concomitant]
  38. MEGACE [Concomitant]
  39. FUROSEMIDE [Concomitant]
  40. POTASSIUM CHLORIDE [Concomitant]
  41. FASLODEX [Concomitant]
     Dates: start: 20050201
  42. LORAZEPAM [Concomitant]
  43. IBUPROFEN [Concomitant]
  44. ANCEF [Concomitant]
  45. DECADRON [Concomitant]
  46. AUGMENTIN '125' [Concomitant]
  47. INTRALIPID 10% [Concomitant]
  48. PHENERGAN [Concomitant]
  49. NORCO [Concomitant]
  50. MYLANTA                                 /USA/ [Concomitant]
  51. FEMARA [Concomitant]
     Dosage: 2.5 MG, QD
     Dates: start: 19960101, end: 20030201
  52. ANUSOL                                  /NET/ [Concomitant]
  53. PERCOCET [Concomitant]
  54. GENTAMICIN [Concomitant]
  55. PEPCID [Concomitant]
  56. CYTOXAN [Concomitant]
  57. DEMEROL [Concomitant]
  58. AQUAMEPHYTON [Concomitant]
  59. VITAMIN B-12 [Concomitant]
  60. TRIAMTERENE [Concomitant]
  61. VENLAFAXINE HYDROCHLORIDE [Concomitant]
  62. ANASTROZOLE [Concomitant]
     Dates: start: 20000101, end: 20050201
  63. CHLORHEXIDINE GLUCONATE [Concomitant]
  64. METHOTREXATE [Concomitant]
  65. PROCRIT                            /00909301/ [Concomitant]
  66. COMPAZINE [Concomitant]
  67. CELEXA [Concomitant]
  68. FOLIC ACID [Concomitant]
  69. KLONOPIN [Concomitant]
  70. MACROBID [Concomitant]
  71. ABRAXANE [Concomitant]
  72. DILAUDID [Concomitant]
  73. LACTULOSE [Concomitant]
  74. HUMULIN R [Concomitant]
  75. FLAGYL [Concomitant]
  76. TORADOL [Concomitant]

REACTIONS (61)
  - INSOMNIA [None]
  - METASTASES TO ABDOMINAL CAVITY [None]
  - GASTROINTESTINAL OBSTRUCTION [None]
  - COLONIC OBSTRUCTION [None]
  - ANIMAL BITE [None]
  - DYSPNOEA [None]
  - DYSFUNCTIONAL UTERINE BLEEDING [None]
  - HYDRONEPHROSIS [None]
  - VOMITING [None]
  - NAUSEA [None]
  - OSTEONECROSIS OF JAW [None]
  - PAIN IN JAW [None]
  - METASTASES TO BONE [None]
  - PLANTAR FASCIITIS [None]
  - ANASTOMOTIC LEAK [None]
  - RENAL ATROPHY [None]
  - PLEURAL EFFUSION [None]
  - METASTASES TO LUNG [None]
  - GINGIVAL SWELLING [None]
  - PURULENT DISCHARGE [None]
  - OSTEOMYELITIS [None]
  - IMPAIRED HEALING [None]
  - LOCALISED INFECTION [None]
  - TRAUMATIC HAEMATOMA [None]
  - EDENTULOUS [None]
  - HAEMORRHAGE [None]
  - OEDEMA PERIPHERAL [None]
  - SWELLING FACE [None]
  - PANCREATIC NEOPLASM [None]
  - FACIAL PAIN [None]
  - RASH PRURITIC [None]
  - ARTHRALGIA [None]
  - MASS [None]
  - COLON NEOPLASM [None]
  - FAECALOMA [None]
  - PNEUMONIA [None]
  - URETERIC OBSTRUCTION [None]
  - SEROSITIS [None]
  - FISTULA [None]
  - MALNUTRITION [None]
  - FEBRILE NEUTROPENIA [None]
  - BENIGN NEOPLASM OF THYROID GLAND [None]
  - ATELECTASIS [None]
  - OEDEMA MUCOSAL [None]
  - ANAEMIA [None]
  - BONE DISORDER [None]
  - EMOTIONAL DISTRESS [None]
  - SENSATION OF PRESSURE [None]
  - DEPRESSION [None]
  - GRANULOMA [None]
  - ANXIETY [None]
  - SYNCOPE [None]
  - GENERAL PHYSICAL HEALTH DETERIORATION [None]
  - DECREASED INTEREST [None]
  - GINGIVAL ERYTHEMA [None]
  - PAIN [None]
  - DEFAECATION URGENCY [None]
  - ABDOMINAL PAIN [None]
  - HAEMATURIA [None]
  - LYMPHADENOPATHY [None]
  - METASTASES TO PERITONEUM [None]
